FAERS Safety Report 23093236 (Version 1)
Quarter: 2023Q4

REPORT INFORMATION
  Report Type: Spontaneous
  Country: JP (occurrence: JP)
  Receive Date: 20231022
  Receipt Date: 20231022
  Transmission Date: 20240110
  Serious: Yes (Other)
  Sender: FDA-Public Use
  Company Number: JP-002147023-NVSJ2023JP015204

PATIENT
  Sex: Female

DRUGS (1)
  1. CYCLOSPORINE [Suspect]
     Active Substance: CYCLOSPORINE
     Indication: Dermatitis atopic
     Dosage: SELF-ADJUSTMENT AT A MAXIMUM DAILY DOSE OF 200 MG, BY THE METHOD OF ORAL ADMINISTRATION FOR 3 MONTHS
     Route: 048

REACTIONS (1)
  - Glomerulonephritis [Unknown]
